FAERS Safety Report 9620218 (Version 1)
Quarter: 2013Q4

REPORT INFORMATION
  Report Type: Spontaneous
  Country: US (occurrence: US)
  Receive Date: 20131014
  Receipt Date: 20131014
  Transmission Date: 20140711
  Serious: No
  Sender: FDA-Public Use
  Company Number: US-ALLERGAN-1314107US

PATIENT
  Sex: Male

DRUGS (2)
  1. LUMIGAN [Suspect]
     Indication: GLAUCOMA
     Dosage: UNK
     Dates: start: 200404, end: 20130901
  2. ALPHAGAN P [Suspect]
     Indication: GLAUCOMA
     Dosage: UNK
     Dates: start: 200903, end: 20130901

REACTIONS (1)
  - Therapeutic response decreased [Unknown]
